FAERS Safety Report 11216893 (Version 3)
Quarter: 2015Q2

REPORT INFORMATION
  Report Type: Spontaneous
  Country: US (occurrence: US)
  Receive Date: 20150624
  Receipt Date: 20150628
  Transmission Date: 20150821
  Serious: Yes (Other)
  Sender: FDA-Public Use
  Company Number: US-TEVA-572660ACC

PATIENT
  Age: 30 Year
  Sex: Female
  Weight: 57.66 kg

DRUGS (2)
  1. PROCARDIA XL [Concomitant]
     Active Substance: NIFEDIPINE
     Indication: HYPERTENSION
     Dosage: 30 MILLIGRAM DAILY;
  2. PARAGARD T 380A [Suspect]
     Active Substance: COPPER
     Indication: CONTRACEPTION
     Route: 015
     Dates: start: 20150515, end: 20150522

REACTIONS (3)
  - Device dislocation [Recovered/Resolved]
  - Product quality issue [Unknown]
  - Pain [Unknown]

NARRATIVE: CASE EVENT DATE: 20150521
